FAERS Safety Report 4637293-1 (Version None)
Quarter: 2005Q2

REPORT INFORMATION
  Report Type: 
  Country: None (occurrence: None)
  Receive Date: 20050418
  Receipt Date: 20050404
  Transmission Date: 20051028
  Serious: Yes (Hospitalization, Other)
  Sender: FDA-Public Use
  Company Number: 200512719US

PATIENT
  Sex: Female
  Weight: 61 kg

DRUGS (9)
  1. TAXOTERE [Suspect]
     Indication: BREAST CANCER
     Route: 042
     Dates: start: 20050328, end: 20050328
  2. XELODA [Suspect]
     Indication: BREAST CANCER
     Route: 048
     Dates: start: 20050328, end: 20050331
  3. VITAMINS [Concomitant]
     Route: 048
     Dates: start: 20041001
  4. WARFARIN SODIUM [Concomitant]
     Route: 048
     Dates: start: 20041101
  5. COMPAZINE [Concomitant]
     Indication: NAUSEA
     Route: 048
     Dates: start: 20041109, end: 20050214
  6. DIFLUCAN [Concomitant]
     Indication: CANDIDIASIS
     Route: 048
     Dates: start: 20050201
  7. DEXAMETHASONE [Concomitant]
     Indication: PREMEDICATION
     Route: 048
     Dates: start: 20050124
  8. B6 [Concomitant]
     Dosage: DOSE: 100-200
     Dates: start: 20050124
  9. NYSTATIN [Concomitant]
     Indication: CANDIDIASIS
     Dosage: DOSE UNIT: TEASPOON
     Dates: start: 20050222

REACTIONS (9)
  - BLOOD POTASSIUM DECREASED [None]
  - BLOOD SODIUM DECREASED [None]
  - BLOOD UREA DECREASED [None]
  - DIARRHOEA [None]
  - FEBRILE NEUTROPENIA [None]
  - HAEMOGLOBIN DECREASED [None]
  - INTERNATIONAL NORMALISED RATIO INCREASED [None]
  - PLATELET COUNT DECREASED [None]
  - PROTHROMBIN TIME ABNORMAL [None]
